FAERS Safety Report 14056628 (Version 1)
Quarter: 2017Q4

REPORT INFORMATION
  Report Type: Other
  Country: US (occurrence: US)
  Receive Date: 20171006
  Receipt Date: 20171006
  Transmission Date: 20180321
  Serious: No
  Sender: FDA-Public Use
  Company Number: US-GLENMARK PHARMACEUTICALS-2017GMK028437

PATIENT

DRUGS (1)
  1. DROSPIRENONE/ETHINYLESTRADIOL TABLETS 3 MG/0.03 MG [Suspect]
     Active Substance: DROSPIRENONE\ETHINYL ESTRADIOL
     Indication: CHEMICAL CONTRACEPTION
     Dosage: UNK
     Route: 065
     Dates: start: 20170916

REACTIONS (5)
  - Menorrhagia [Unknown]
  - Metrorrhagia [Unknown]
  - Product substitution issue [Unknown]
  - Product formulation issue [Unknown]
  - Drug ineffective [Unknown]
